FAERS Safety Report 6480159-5 (Version None)
Quarter: 2009Q4

REPORT INFORMATION
  Report Type: 
  Country: None (occurrence: None)
  Receive Date: 20091208
  Receipt Date: 20091127
  Transmission Date: 20100525
  Serious: Yes (Death, Other)
  Sender: FDA-Public Use
  Company Number: SE-ABBOTT-06P-150-0353817-00

PATIENT
  Age: 33 Year
  Sex: Female

DRUGS (4)
  1. REDUCTIL 10MG [Suspect]
     Indication: OBESITY
     Route: 048
     Dates: start: 20051213
  2. BETAPRED [Suspect]
     Indication: IRITIS
     Route: 048
     Dates: start: 19950101
  3. BETAPRED [Suspect]
  4. ZANTAC [Suspect]
     Indication: GASTROENTERITIS
     Route: 048
     Dates: start: 20051107

REACTIONS (7)
  - ADRENOCORTICAL INSUFFICIENCY ACUTE [None]
  - CARDIAC ARREST [None]
  - CYANOSIS [None]
  - DAYDREAMING [None]
  - GASTROENTERITIS [None]
  - LOSS OF CONSCIOUSNESS [None]
  - STEROID THERAPY [None]
